FAERS Safety Report 21138574 (Version 1)
Quarter: 2022Q3

REPORT INFORMATION
  Report Type: Spontaneous
  Country: US (occurrence: None)
  Receive Date: 20220727
  Receipt Date: 20220727
  Transmission Date: 20221027
  Serious: No
  Sender: FDA-Public Use
  Company Number: None

PATIENT
  Age: 13 Year
  Sex: Female

DRUGS (1)
  1. LUPRON DEPOT [Suspect]
     Active Substance: LEUPROLIDE ACETATE
     Dosage: OTHER QUANTITY : 11.25MG;?OTHER FREQUENCY : UNKNOWN;?
     Route: 030

REACTIONS (1)
  - Product formulation issue [None]

NARRATIVE: CASE EVENT DATE: 20220726
